FAERS Safety Report 25632757 (Version 1)
Quarter: 2025Q3

REPORT INFORMATION
  Report Type: Spontaneous
  Country: CA (occurrence: None)
  Receive Date: 20250801
  Receipt Date: 20250801
  Transmission Date: 20251020
  Serious: Yes (Other)
  Sender: ORION
  Company Number: CA-PFIZER INC-202500152691

PATIENT
  Age: 78 Year
  Sex: Female

DRUGS (12)
  1. METHOTREXATE [Suspect]
     Active Substance: METHOTREXATE
     Indication: Product used for unknown indication
  2. ACTEMRA [Concomitant]
     Active Substance: TOCILIZUMAB
  3. PREDNISONE [Concomitant]
     Active Substance: PREDNISONE
  4. RITUXIMAB [Concomitant]
     Active Substance: RITUXIMAB
     Indication: Rheumatoid arthritis
     Dates: start: 20210923, end: 20211007
  5. RITUXIMAB [Concomitant]
     Active Substance: RITUXIMAB
     Dates: start: 20220316, end: 20220504
  6. RITUXIMAB [Concomitant]
     Active Substance: RITUXIMAB
     Dates: start: 20221021, end: 20221102
  7. RITUXIMAB [Concomitant]
     Active Substance: RITUXIMAB
     Dates: start: 20230426, end: 20231018
  8. RITUXIMAB [Concomitant]
     Active Substance: RITUXIMAB
     Dates: start: 20230426, end: 20231123
  9. RITUXIMAB [Concomitant]
     Active Substance: RITUXIMAB
     Dates: start: 20231123, end: 20231123
  10. RITUXIMAB [Concomitant]
     Active Substance: RITUXIMAB
     Dates: start: 20240604, end: 20240604
  11. RITUXIMAB [Concomitant]
     Active Substance: RITUXIMAB
     Dates: start: 20250401, end: 20250416
  12. SULFASALAZINE [Concomitant]
     Active Substance: SULFASALAZINE

REACTIONS (3)
  - Hepatic cirrhosis [Unknown]
  - Drug intolerance [Unknown]
  - Contraindicated product administered [Unknown]
